FAERS Safety Report 14892773 (Version 4)
Quarter: 2020Q3

REPORT INFORMATION
  Report Type: Report from Study
  Country: BE (occurrence: BE)
  Receive Date: 20180514
  Receipt Date: 20180627
  Transmission Date: 20201105
  Serious: Yes (Hospitalization)
  Sender: FDA-Public Use
  Company Number: BE-JNJFOC-20180514318

PATIENT
  Sex: Female

DRUGS (45)
  1. IBRUTINIB [Suspect]
     Active Substance: IBRUTINIB
     Indication: CHRONIC LYMPHOCYTIC LEUKAEMIA
     Route: 048
     Dates: start: 20180510
  2. CIPROFLOXACIN. [Concomitant]
     Active Substance: CIPROFLOXACIN
  3. METOCLOPRAMIDE. [Concomitant]
     Active Substance: METOCLOPRAMIDE
     Route: 048
  4. MOVICOL [Concomitant]
     Active Substance: POLYETHYLENE GLYCOL 3350\POTASSIUM CHLORIDE\SODIUM BICARBONATE\SODIUM CHLORIDE
     Dosage: UNK, PRN
     Route: 048
  5. LORMETAZEPAM [Concomitant]
     Active Substance: LORMETAZEPAM
     Route: 048
  6. BUSCOPAN [Concomitant]
     Active Substance: BUTYLSCOPOLAMINE BROMIDE
     Route: 048
  7. ASPIRINE [Concomitant]
     Active Substance: ASPIRIN
     Dosage: 100 MG, QD, THREE TIMES PER WEEK
     Route: 048
  8. RANITIDINE. [Concomitant]
     Active Substance: RANITIDINE
     Route: 048
  9. LIMONADE [Concomitant]
     Dosage: 1 BOTTLE
     Route: 048
  10. FENISTIL [Concomitant]
     Active Substance: DIMETHINDENE
     Route: 048
  11. IBRUTINIB [Suspect]
     Active Substance: IBRUTINIB
     Indication: CHRONIC LYMPHOCYTIC LEUKAEMIA
     Route: 048
     Dates: start: 20150701
  12. IBRUTINIB [Suspect]
     Active Substance: IBRUTINIB
     Indication: CHRONIC LYMPHOCYTIC LEUKAEMIA
     Route: 048
     Dates: start: 20180417, end: 20180426
  13. ZOVIRAX [Concomitant]
     Active Substance: ACYCLOVIR
     Route: 048
  14. ISOPTO TEARS [Concomitant]
     Active Substance: HYPROMELLOSE 2910 (4000 MPA.S)
     Dosage: UNK, TID
     Route: 047
  15. UREUM [Concomitant]
     Dosage: 5%, PRN
     Route: 061
  16. ZANIDIP [Concomitant]
     Active Substance: LERCANIDIPINE HYDROCHLORIDE
     Route: 048
  17. OMEPRAZOLE. [Concomitant]
     Active Substance: OMEPRAZOLE
     Dosage: UNK UNK, BID
     Route: 048
  18. FRESUBIN [Concomitant]
     Active Substance: AMINO ACIDS\DEXTROSE\ELECTROLYTES NOS\SOYBEAN OIL\VITAMINS
     Dosage: 1 BOTTLE, QD
     Route: 048
  19. PANAX GINSENG [Concomitant]
     Active Substance: ASIAN GINSENG
     Dosage: 1 CO, QD
     Route: 048
  20. HYLO COMOD [Concomitant]
     Active Substance: HYALURONATE SODIUM
     Dosage: UNK, GTT, QD
     Route: 047
  21. LACRINORM [Concomitant]
     Active Substance: CARBOMER
     Route: 047
  22. POTASSIUM [Concomitant]
     Active Substance: POTASSIUM
     Indication: HYPOKALAEMIA
  23. AMLODIPINE [Concomitant]
     Active Substance: AMLODIPINE BESYLATE
     Route: 048
  24. CICALFATE [Concomitant]
     Dosage: 1 APP
     Route: 061
  25. ELOCOM [Concomitant]
     Active Substance: MOMETASONE FUROATE
     Dosage: 1 APP
     Route: 061
  26. ALCON EYE [Concomitant]
     Route: 047
  27. MOTILIUM [Concomitant]
     Active Substance: DOMPERIDONE
     Dosage: 10 MG, QD, PRN
     Route: 048
  28. LAXOBERON [Concomitant]
     Active Substance: SODIUM PICOSULFATE
     Route: 048
  29. TAVANIC [Concomitant]
     Active Substance: LEVOFLOXACIN
     Route: 048
  30. AUGMENTIN [Concomitant]
     Active Substance: AMOXICILLIN\CLAVULANATE POTASSIUM
  31. TAMSULOSINE [Concomitant]
     Active Substance: TAMSULOSIN HYDROCHLORIDE
     Route: 048
  32. OLMETEC PLUS [Concomitant]
     Active Substance: HYDROCHLOROTHIAZIDE\OLMESARTAN MEDOXOMIL
     Dosage: 1 CO, QD
     Route: 048
  33. ONDANSETRON [Concomitant]
     Active Substance: ONDANSETRON
     Dosage: 8 MG, TID
     Route: 048
  34. NISTATIN [Concomitant]
     Active Substance: NYSTATIN
     Dosage: 1 CC, QD
  35. CLEXANE [Concomitant]
     Active Substance: ENOXAPARIN SODIUM
     Route: 048
  36. DEXERYL (GLYCEROL AND WHITE SOFT PARAFFIN AND LIQUID PARAFFIN) [Concomitant]
     Active Substance: GLYCERIN\MINERAL OIL\PETROLATUM
     Route: 061
  37. TRAMADOL. [Concomitant]
     Active Substance: TRAMADOL
     Route: 048
  38. TARGOCID [Concomitant]
     Active Substance: TEICOPLANIN
     Route: 048
  39. DEXPANTHENOL. [Concomitant]
     Active Substance: DEXPANTHENOL
     Route: 048
  40. NILSTAT [Concomitant]
     Active Substance: NYSTATIN
     Route: 048
  41. PRIMPERAN [Concomitant]
     Active Substance: METOCLOPRAMIDE HYDROCHLORIDE
     Route: 048
  42. FLUCONAZOLE. [Concomitant]
     Active Substance: FLUCONAZOLE
     Route: 048
  43. LITICAN [Concomitant]
     Active Substance: ALIZAPRIDE HYDROCHLORIDE
     Route: 048
  44. NEGABAN [Concomitant]
     Active Substance: TEMOCILLIN
  45. OXYBUTYNINE [Concomitant]
     Active Substance: OXYBUTYNIN CHLORIDE
     Route: 048

REACTIONS (1)
  - Transient ischaemic attack [Recovered/Resolved]

NARRATIVE: CASE EVENT DATE: 20180501
